FAERS Safety Report 8332828-X (Version None)
Quarter: 2012Q2

REPORT INFORMATION
  Report Type: 
  Country: None (occurrence: None)
  Receive Date: 20120503
  Receipt Date: 20120425
  Transmission Date: 20120825
  Serious: Yes (Life-Threatening, Hospitalization)
  Sender: FDA-Public Use
  Company Number: US-BAYER-2012-001264

PATIENT
  Age: 45 Year
  Sex: Female
  Weight: 95 kg

DRUGS (7)
  1. VITAMIN TAB [Concomitant]
     Dosage: DAILY
     Route: 048
  2. YAZ [Suspect]
     Indication: CONTRACEPTION
     Dosage: UNK
     Dates: start: 20081001, end: 20090101
  3. YAZ [Suspect]
     Indication: PREMENSTRUAL SYNDROME
  4. THYROID [Concomitant]
     Indication: THYROID DISORDER
     Dosage: UNK
     Dates: start: 19910101, end: 20110101
  5. IBUPROFEN [Concomitant]
     Indication: PREMENSTRUAL SYNDROME
     Dosage: UNK UNK, PRN
  6. METOPROLOL TARTRATE [Concomitant]
  7. IBUPROFEN [Concomitant]
     Indication: HEADACHE

REACTIONS (8)
  - INJURY [None]
  - PAIN [None]
  - FEAR OF DEATH [None]
  - EMOTIONAL DISTRESS [None]
  - DEEP VEIN THROMBOSIS [None]
  - NERVOUSNESS [None]
  - PULMONARY EMBOLISM [None]
  - DEPRESSION [None]
